FAERS Safety Report 14928052 (Version 1)
Quarter: 2018Q2

REPORT INFORMATION
  Report Type: Report from Study
  Country: DE (occurrence: DE)
  Receive Date: 20180523
  Receipt Date: 20180523
  Transmission Date: 20180711
  Serious: Yes (Death, Other)
  Sender: FDA-Public Use
  Company Number: DE-ROCHE-2127792

PATIENT

DRUGS (1)
  1. ALTEPLASE. [Suspect]
     Active Substance: ALTEPLASE
     Indication: CEREBROVASCULAR ACCIDENT
     Dosage: (WITH 10% ADMINISTERED AS A BOLUS AND THE REMAINDER BY INFUSION DURING A 60-MINUTE PERIOD)
     Route: 042

REACTIONS (2)
  - Hypertension [Unknown]
  - Haemorrhage intracranial [Fatal]
